FAERS Safety Report 6565976-5 (Version None)
Quarter: 2010Q1

REPORT INFORMATION
  Report Type: 
  Country: None (occurrence: None)
  Receive Date: 20100201
  Receipt Date: 20091221
  Transmission Date: 20100710
  Serious: No
  Sender: FDA-Public Use
  Company Number: US-ALLERGAN-0917544US

PATIENT
  Sex: Female

DRUGS (3)
  1. ACUVAIL [Suspect]
     Indication: POSTOPERATIVE CARE
  2. ZYMAR [Suspect]
     Indication: POSTOPERATIVE CARE
  3. PRED FORTE [Suspect]
     Indication: POSTOPERATIVE CARE

REACTIONS (2)
  - PHOTOPSIA [None]
  - VISUAL IMPAIRMENT [None]
